FAERS Safety Report 5026886-8 (Version None)
Quarter: 2006Q2

REPORT INFORMATION
  Report Type: 
  Country: None (occurrence: None)
  Receive Date: 20060608
  Receipt Date: 20060524
  Transmission Date: 20061013
  Serious: Yes (Other)
  Sender: FDA-Public Use
  Company Number: A-JP2006-12366

PATIENT
  Sex: Female

DRUGS (5)
  1. TRACLEER [Suspect]
     Indication: PULMONARY HYPERTENSION
     Dosage: 93.75 MG, BID, ORAL; SEE IMAGE
     Route: 048
     Dates: end: 20060519
  2. TRACLEER [Suspect]
     Indication: PULMONARY HYPERTENSION
     Dosage: 93.75 MG, BID, ORAL; SEE IMAGE
     Route: 048
     Dates: start: 20051114
  3. EPOPROSTENOL SODIUM              (EPOPROSTENOL SODIUM) [Concomitant]
  4. WARFARIN SODIUM [Concomitant]
  5. OXYGEN           (OXYGEN) [Concomitant]

REACTIONS (2)
  - LIVER DISORDER [None]
  - TRANSAMINASES INCREASED [None]
